FAERS Safety Report 5673976-2 (Version None)
Quarter: 2008Q1

REPORT INFORMATION
  Report Type: 
  Country: None (occurrence: None)
  Receive Date: 20080317
  Receipt Date: 20080308
  Transmission Date: 20080703
  Serious: Yes (Hospitalization)
  Sender: FDA-Public Use
  Company Number: GP-08-03-0004

PATIENT
  Age: 65 Year
  Sex: Female

DRUGS (5)
  1. GABAPENTIN           (UNKNOWN MANUFACTURER/LABELER) [Suspect]
     Indication: CONVULSION PROPHYLAXIS
     Dosage: 600 MG TID PO, 900 MG TID PO
     Route: 048
  2. GABAPENTIN           (UNKNOWN MANUFACTURER/LABELER) [Suspect]
     Indication: CONVULSION PROPHYLAXIS
     Dosage: 600 MG TID PO, 900 MG TID PO
     Route: 048
  3. NIMODIPINE [Concomitant]
  4. ACETAMINOPHEN [Concomitant]
  5. OMEPRAZOLE [Concomitant]

REACTIONS (3)
  - COMA [None]
  - GENERAL PHYSICAL HEALTH DETERIORATION [None]
  - TOXIC ENCEPHALOPATHY [None]
